FAERS Safety Report 5293840-0 (Version None)
Quarter: 2007Q2

REPORT INFORMATION
  Report Type: 
  Country: None (occurrence: None)
  Receive Date: 20070411
  Receipt Date: 20070404
  Transmission Date: 20071010
  Serious: Yes (Other)
  Sender: FDA-Public Use
  Company Number: US-MERCK-0704USA01164

PATIENT

DRUGS (1)
  1. COZAAR [Suspect]
     Route: 048

REACTIONS (1)
  - RHABDOMYOLYSIS [None]
